FAERS Safety Report 8049208-7 (Version None)
Quarter: 2012Q1

REPORT INFORMATION
  Report Type: 
  Country: None (occurrence: None)
  Receive Date: 20120117
  Receipt Date: 20120105
  Transmission Date: 20120608
  Serious: Yes (Other)
  Sender: FDA-Public Use
  Company Number: CA-JNJFOC-20120105239

PATIENT
  Sex: Female
  Weight: 53 kg

DRUGS (2)
  1. DOXYCYCLINE [Concomitant]
     Route: 048
  2. REMICADE [Suspect]
     Indication: CROHN'S DISEASE
     Route: 042
     Dates: start: 20090101

REACTIONS (2)
  - BARTHOLIN'S CYST [None]
  - FUNGAL INFECTION [None]
